FAERS Safety Report 4502324-6 (Version None)
Quarter: 2004Q4

REPORT INFORMATION
  Report Type: 
  Country: None (occurrence: None)
  Receive Date: 20041116
  Receipt Date: 20041102
  Transmission Date: 20050328
  Serious: Yes (Other)
  Sender: FDA-Public Use
  Company Number: JP-GLAXOSMITHKLINE-B0351021A

PATIENT
  Age: 37 Year
  Sex: Female

DRUGS (11)
  1. PREDNISOLONE [Suspect]
     Route: 042
  2. ZOVIRAX [Suspect]
     Indication: HERPES SIMPLEX
     Route: 042
  3. PREDNISOLONE [Concomitant]
     Route: 048
  4. MIANSERIN HYDROCHLORIDE [Concomitant]
     Route: 048
  5. LITHIUM CARBONATE [Concomitant]
     Route: 048
  6. CYTARABINE [Concomitant]
     Route: 065
  7. IDARUBICIN [Concomitant]
     Route: 065
  8. MITOXANTRONE [Concomitant]
     Route: 065
  9. BONE MARROW TRANSPLANT [Concomitant]
     Route: 065
  10. TOTAL BODY IRRADIATION [Concomitant]
     Route: 065
  11. THIOTEPA [Concomitant]
     Route: 065

REACTIONS (10)
  - AGITATION [None]
  - ANXIETY [None]
  - CHEST PAIN [None]
  - DEPRESSION [None]
  - DIARRHOEA [None]
  - GRAFT VERSUS HOST DISEASE [None]
  - HERPES SIMPLEX [None]
  - NAUSEA [None]
  - RASH [None]
  - SUICIDAL IDEATION [None]
